FAERS Safety Report 4834007-7 (Version None)
Quarter: 2005Q4

REPORT INFORMATION
  Report Type: 
  Country: None (occurrence: None)
  Receive Date: 20051122
  Receipt Date: 20031029
  Transmission Date: 20060501
  Serious: Yes (Other)
  Sender: FDA-Public Use
  Company Number: 203136

PATIENT
  Age: 49 Year
  Sex: Female

DRUGS (10)
  1. XOLAIR [Suspect]
     Indication: ASTHMA
     Dosage: 350 MG, Q2W, SUBCUTANEOUS
     Route: 058
     Dates: start: 20030924, end: 20031027
  2. ZYRTEC [Concomitant]
  3. FLOVENT (FLUTICAONSE PROPIONATE) [Concomitant]
  4. CARDIZEM (DILTEZEM HYDROCHLORIDE) [Concomitant]
  5. SPORANOX [Concomitant]
  6. SINGULAIR [Concomitant]
  7. DYAZIDE (TRIAMTERENE HYDROCHLOROTHIAZIDE) [Concomitant]
  8. ADVAIR DISKUS 100/50 [Concomitant]
  9. ATROVENT [Concomitant]
  10. ALBUTEROL [Concomitant]

REACTIONS (1)
  - ALOPECIA [None]
